FAERS Safety Report 20887272 (Version 2)
Quarter: 2022Q3

REPORT INFORMATION
  Report Type: Spontaneous
  Country: ES (occurrence: ES)
  Receive Date: 20220528
  Receipt Date: 20220708
  Transmission Date: 20221027
  Serious: Yes (Other)
  Sender: FDA-Public Use
  Company Number: ES-TEVA-2022-ES-2040913

PATIENT
  Age: 22 Year
  Sex: Male

DRUGS (3)
  1. RESLIZUMAB [Suspect]
     Active Substance: RESLIZUMAB
     Indication: Product used for unknown indication
     Route: 042
  2. RESLIZUMAB [Suspect]
     Active Substance: RESLIZUMAB
     Route: 042
  3. RESLIZUMAB [Suspect]
     Active Substance: RESLIZUMAB
     Route: 042

REACTIONS (1)
  - Injection site hypersensitivity [Recovered/Resolved]
